FAERS Safety Report 8492269-1 (Version None)
Quarter: 2012Q3

REPORT INFORMATION
  Report Type: 
  Country: None (occurrence: None)
  Receive Date: 20120706
  Receipt Date: 20120702
  Transmission Date: 20120928
  Serious: Yes (Death)
  Sender: FDA-Public Use
  Company Number: FR-ROCHE-1082227

PATIENT
  Sex: Female

DRUGS (4)
  1. AVASTIN [Suspect]
     Indication: LUNG NEOPLASM MALIGNANT
     Route: 065
  2. CARBOPLATIN [Concomitant]
     Indication: NON-SMALL CELL LUNG CANCER
     Dates: start: 20110607, end: 20110629
  3. PACLITAXEL [Concomitant]
     Indication: NON-SMALL CELL LUNG CANCER
  4. PEMETREXED [Concomitant]

REACTIONS (1)
  - DISEASE PROGRESSION [None]
